FAERS Safety Report 12771960 (Version 1)
Quarter: 2016Q3

REPORT INFORMATION
  Report Type: Spontaneous
  Country: CA (occurrence: CA)
  Receive Date: 20160922
  Receipt Date: 20160922
  Transmission Date: 20161109
  Serious: Yes (Hospitalization)
  Sender: FDA-Public Use
  Company Number: CA-ALLERGAN-1669533US

PATIENT
  Age: 88 Year
  Sex: Female

DRUGS (1)
  1. BOTOX [Suspect]
     Active Substance: ONABOTULINUMTOXINA
     Indication: PRODUCT USED FOR UNKNOWN INDICATION
     Dosage: 400 UNITS, SINGLE
     Route: 030
     Dates: start: 20160818, end: 20160818

REACTIONS (2)
  - Botulism [Unknown]
  - Asthenia [Unknown]
